FAERS Safety Report 7617161-3 (Version None)
Quarter: 2011Q3

REPORT INFORMATION
  Report Type: 
  Country: None (occurrence: None)
  Receive Date: 20110718
  Receipt Date: 20110707
  Transmission Date: 20111222
  Serious: Yes (Life-Threatening, Hospitalization, Other)
  Sender: FDA-Public Use
  Company Number: US-BAYER-200943648NA

PATIENT
  Age: 40 Year
  Sex: Female
  Weight: 71.202 kg

DRUGS (3)
  1. YAZ [Suspect]
     Indication: PRODUCT USED FOR UNKNOWN INDICATION
     Route: 048
     Dates: start: 20070901, end: 20080121
  2. IBUPROFEN (ADVIL) [Concomitant]
     Dosage: 800 MG/24HR, QID
  3. SYNTHROID [Concomitant]
     Indication: HYPOTHYROIDISM
     Dosage: UNK UNK, QD
     Route: 048

REACTIONS (6)
  - CHOLECYSTITIS CHRONIC [None]
  - ORGAN FAILURE [None]
  - THROMBOSIS [None]
  - CHOLELITHIASIS [None]
  - GALLBLADDER NON-FUNCTIONING [None]
  - DEEP VEIN THROMBOSIS [None]
